FAERS Safety Report 14895112 (Version 1)
Quarter: 2018Q2

REPORT INFORMATION
  Report Type: Spontaneous
  Country: IE (occurrence: IE)
  Receive Date: 20180515
  Receipt Date: 20180515
  Transmission Date: 20180711
  Serious: Yes (Hospitalization, Other)
  Sender: FDA-Public Use
  Company Number: IE-AMGEN-IRLSP2018064294

PATIENT
  Age: 87 Year
  Sex: Male

DRUGS (1)
  1. MIMPARA [Suspect]
     Active Substance: CINACALCET HYDROCHLORIDE
     Indication: PRODUCT USED FOR UNKNOWN INDICATION
     Dosage: 60 MG, BID
     Route: 048
     Dates: start: 2017

REACTIONS (2)
  - Unevaluable event [Unknown]
  - Gastrostomy [Unknown]
